FAERS Safety Report 25922891 (Version 2)
Quarter: 2025Q4

REPORT INFORMATION
  Report Type: Spontaneous
  Country: US (occurrence: US)
  Receive Date: 20251015
  Receipt Date: 20251106
  Transmission Date: 20260117
  Serious: No
  Sender: SANOFI AVENTIS
  Company Number: US-SA-2025SA305084

PATIENT
  Age: 57 Year
  Sex: Male

DRUGS (2)
  1. DUPIXENT [Suspect]
     Active Substance: DUPILUMAB
     Indication: Eczema
     Dosage: 600 MG, 1X
     Route: 058
     Dates: start: 20250831, end: 20250831
  2. DUPIXENT [Suspect]
     Active Substance: DUPILUMAB
     Indication: Dermatitis atopic
     Dosage: 300 MG, QOW
     Route: 058
     Dates: start: 20250914

REACTIONS (6)
  - Loss of personal independence in daily activities [Unknown]
  - Dermatitis [Not Recovered/Not Resolved]
  - Eczema [Unknown]
  - Skin exfoliation [Unknown]
  - Pruritus [Unknown]
  - Sensitive skin [Unknown]

NARRATIVE: CASE EVENT DATE: 20250101
